FAERS Safety Report 14124505 (Version 1)
Quarter: 2017Q4

REPORT INFORMATION
  Report Type: Spontaneous
  Country: GB (occurrence: GB)
  Receive Date: 20171025
  Receipt Date: 20171025
  Transmission Date: 20180321
  Serious: Yes (Life-Threatening, Other)
  Sender: FDA-Public Use
  Company Number: GB-PFIZER INC-2017457431

PATIENT
  Age: 56 Year
  Sex: Female

DRUGS (4)
  1. PARACETAMOL [Concomitant]
     Active Substance: ACETAMINOPHEN
     Dosage: UNK
  2. PROPOFOL. [Concomitant]
     Active Substance: PROPOFOL
     Dosage: UNK
  3. FENTANIL [Concomitant]
     Active Substance: FENTANYL
     Dosage: UNK
  4. ROCURONIUM BROMIDE. [Suspect]
     Active Substance: ROCURONIUM BROMIDE
     Dosage: UNK
     Route: 042

REACTIONS (4)
  - Hypotension [Unknown]
  - Hypoventilation [Unknown]
  - Tachycardia [Unknown]
  - Anaphylactic reaction [Recovered/Resolved]
